FAERS Safety Report 6013934-1 (Version None)
Quarter: 2008Q4

REPORT INFORMATION
  Report Type: 
  Country: None (occurrence: None)
  Receive Date: 20081219
  Receipt Date: 20081217
  Transmission Date: 20090506
  Serious: Yes (Hospitalization)
  Sender: FDA-Public Use
  Company Number: US-MERCK-0812USA03776

PATIENT
  Age: 78 Year
  Sex: Male

DRUGS (4)
  1. JANUVIA [Suspect]
     Indication: TYPE 2 DIABETES MELLITUS
     Route: 048
     Dates: start: 20060101
  2. BYETTA [Concomitant]
     Route: 065
  3. INSULIN [Concomitant]
     Route: 065
  4. LASIX [Concomitant]
     Route: 065

REACTIONS (3)
  - BLOOD ELECTROLYTES INCREASED [None]
  - INAPPROPRIATE SCHEDULE OF DRUG ADMINISTRATION [None]
  - RENAL DISORDER [None]
